FAERS Safety Report 6287676-1 (Version None)
Quarter: 2009Q3

REPORT INFORMATION
  Report Type: 
  Country: None (occurrence: None)
  Receive Date: 20090717
  Receipt Date: 20090219
  Transmission Date: 20100115
  Serious: Yes (Death)
  Sender: FDA-Public Use
  Company Number: 2009SP003926

PATIENT
  Sex: Male

DRUGS (5)
  1. INTEGRILIN [Suspect]
     Indication: PERCUTANEOUS CORONARY INTERVENTION
     Dosage: INBO
     Route: 040
     Dates: start: 20081101, end: 20081101
  2. INTEGRILIN [Suspect]
     Dosage: INDRP
     Route: 041
     Dates: start: 20081101, end: 20081101
  3. CLOPID [Concomitant]
  4. ASPIRIN [Concomitant]
  5. HEPARIN [Concomitant]

REACTIONS (1)
  - GASTROINTESTINAL HAEMORRHAGE [None]
